FAERS Safety Report 8934444 (Version 1)
Quarter: 2012Q4

REPORT INFORMATION
  Report Type: 
  Country: JP (occurrence: JP)
  Receive Date: 20121128
  Receipt Date: 20121128
  Transmission Date: 20130627
  Serious: Yes (Hospitalization)
  Sender: FDA-Public Use
  Company Number: JP-009507513-2012SP031044

PATIENT
  Age: 79 Year
  Sex: Male
  Weight: 60 kg

DRUGS (6)
  1. PEGINTERFERON ALFA-2B [Suspect]
     Indication: CHRONIC HEPATITIS C
     Dosage: 60 ?g, QW
     Route: 058
     Dates: start: 20120222, end: 20120504
  2. PEGINTERFERON ALFA-2B [Suspect]
     Dosage: 50 Microgram, qw
     Route: 058
     Dates: start: 20120516
  3. REBETOL [Suspect]
     Indication: CHRONIC HEPATITIS C
     Dosage: 400 mg, QD
     Route: 048
     Dates: start: 20120222, end: 20120504
  4. REBETOL [Suspect]
     Dosage: 200 mg, QD
     Route: 048
     Dates: start: 20120516
  5. TELAVIC [Suspect]
     Indication: CHRONIC HEPATITIS C
     Dosage: 1500 mg, QD
     Route: 048
     Dates: start: 20120222, end: 20120504
  6. ZYLORIC [Concomitant]
     Indication: PROPHYLAXIS
     Dosage: FORMULATION : POR
     Route: 048
     Dates: end: 20120504

REACTIONS (1)
  - Pneumonia [Recovering/Resolving]
